FAERS Safety Report 18238502 (Version 4)
Quarter: 2021Q1

REPORT INFORMATION
  Report Type: Spontaneous
  Country: US (occurrence: US)
  Receive Date: 20200907
  Receipt Date: 20210212
  Transmission Date: 20210419
  Serious: Yes (Other)
  Sender: FDA-Public Use
  Company Number: US-PFIZER INC-2020344400

PATIENT
  Age: 67 Year
  Sex: Female
  Weight: 69.85 kg

DRUGS (3)
  1. LETROZOLE. [Suspect]
     Active Substance: LETROZOLE
     Indication: BREAST CANCER METASTATIC
     Dosage: 2.5 MG, DAILY [JUST TAKES A PILL]
     Route: 048
     Dates: start: 20200709
  2. IBRANCE [Suspect]
     Active Substance: PALBOCICLIB
     Indication: BREAST CANCER METASTATIC
     Dosage: 125 MG, CYCLIC [DAILY FOR 3 WEEKS AND THEN OFF 1 WEEK]
     Route: 048
  3. IBRANCE [Suspect]
     Active Substance: PALBOCICLIB
     Dosage: 125 MG, CYCLIC [DAILY FOR 3 WEEKS AND THEN OFF 1 WEEK]
     Dates: start: 20200709

REACTIONS (7)
  - Second primary malignancy [Unknown]
  - Perioral dermatitis [Unknown]
  - Immune system disorder [Unknown]
  - Cheilitis [Unknown]
  - Lymphoma [Unknown]
  - Cardiac failure [Unknown]
  - Urinary tract infection [Unknown]
